FAERS Safety Report 7091669-4 (Version None)
Quarter: 2010Q4

REPORT INFORMATION
  Report Type: 
  Country: None (occurrence: None)
  Receive Date: 20101109
  Receipt Date: 20090717
  Transmission Date: 20110411
  Serious: No
  Sender: FDA-Public Use
  Company Number: US-KINGPHARMUSA00001-K200900851

PATIENT
  Age: 78 Year
  Sex: Female
  Weight: 68.027 kg

DRUGS (6)
  1. FLECTOR [Suspect]
     Indication: BACK PAIN
     Dosage: 1 PATCH
     Route: 061
     Dates: start: 20090716, end: 20090717
  2. VICODIN [Concomitant]
     Indication: BACK PAIN
     Dosage: UNK, PRN
     Route: 048
  3. TYLENOL [Concomitant]
     Indication: BACK PAIN
     Dosage: UNK, PRN
     Route: 048
  4. SYNTHROID [Concomitant]
     Indication: HYPOTHYROIDISM
     Dosage: UNK, QD
     Route: 048
  5. ALBUTEROL [Concomitant]
     Indication: ASTHMA
     Dosage: UNK, PRN
  6. ATROVENT [Concomitant]
     Indication: ASTHMA
     Dosage: UNK, PRN

REACTIONS (2)
  - DRUG INEFFECTIVE [None]
  - PAIN [None]
